FAERS Safety Report 5131262-3 (Version None)
Quarter: 2006Q4

REPORT INFORMATION
  Report Type: 
  Country: None (occurrence: None)
  Receive Date: 20061020
  Receipt Date: 20061011
  Transmission Date: 20070319
  Serious: Yes (Death)
  Sender: FDA-Public Use
  Company Number: US-JNJFOC-20061003124

PATIENT

DRUGS (2)
  1. REMICADE [Suspect]
     Indication: JEJUNITIS
     Route: 042
  2. AZATHIOPRINE [Concomitant]

REACTIONS (1)
  - T-CELL UNCLASSIFIABLE LYMPHOMA HIGH GRADE [None]
